FAERS Safety Report 24369416 (Version 3)
Quarter: 2024Q4

REPORT INFORMATION
  Report Type: Report from Study
  Country: US (occurrence: US)
  Receive Date: 20240927
  Receipt Date: 20241123
  Transmission Date: 20250115
  Serious: No
  Sender: ACADIA PHARMACEUTICALS
  Company Number: US-ACADIA PHARMACEUTICALS INC.-ACA-2024-TRF-004887

PATIENT
  Sex: Female

DRUGS (5)
  1. DAYBUE [Suspect]
     Active Substance: TROFINETIDE
     Indication: Rett syndrome
     Dosage: 30 MILLILITER, BID
     Route: 048
     Dates: start: 20240817
  2. DAYBUE [Suspect]
     Active Substance: TROFINETIDE
     Dosage: 45 MILLILITER, BID
     Route: 048
  3. ABILIFY [Concomitant]
     Active Substance: ARIPIPRAZOLE
     Dosage: 5 MILLIGRAM, QD
  4. LAMICTAL [Concomitant]
     Active Substance: LAMOTRIGINE
     Dosage: 200 MILLIGRAM, BID
  5. DOXYCYCLINE [Concomitant]
     Active Substance: DOXYCYCLINE
     Dosage: 100 MILLIGRAM, QD

REACTIONS (2)
  - Product use complaint [Not Recovered/Not Resolved]
  - Diarrhoea [Unknown]
